FAERS Safety Report 9050014 (Version 1)
Quarter: 2013Q1

REPORT INFORMATION
  Report Type: Spontaneous
  Country: US (occurrence: US)
  Receive Date: 20130205
  Receipt Date: 20130205
  Transmission Date: 20140127
  Serious: No
  Sender: FDA-Public Use
  Company Number: US-GLAXOSMITHKLINE-A0974980A

PATIENT
  Age: 43 Year
  Sex: Female

DRUGS (1)
  1. ARIXTRA [Suspect]
     Dosage: .8ML PER DAY
     Route: 065

REACTIONS (1)
  - Incorrect drug administration duration [Recovered/Resolved]
